FAERS Safety Report 7367169-0 (Version None)
Quarter: 2011Q1

REPORT INFORMATION
  Report Type: 
  Country: None (occurrence: None)
  Receive Date: 20110322
  Receipt Date: 20110310
  Transmission Date: 20110831
  Serious: Yes (Other)
  Sender: FDA-Public Use
  Company Number: JP-PFIZER INC-2011060148

PATIENT
  Age: 69 Year
  Sex: Male
  Weight: 70 kg

DRUGS (5)
  1. CAMPTOSAR [Suspect]
     Indication: COLORECTAL CANCER
     Dosage: 176 MG (100 MG/M2), UNK
     Route: 041
     Dates: start: 20110105, end: 20110119
  2. FLUOROURACIL [Concomitant]
     Indication: COLORECTAL CANCER
     Dosage: 704 MG (400 MG/M2), UNK
     Route: 040
     Dates: start: 20110105, end: 20110119
  3. LEUCOVORIN CALCIUM [Concomitant]
     Indication: COLORECTAL CANCER
     Dosage: 352 MG (200 MG/M2), UNK
     Route: 041
     Dates: start: 20110105, end: 20110119
  4. FLUOROURACIL [Concomitant]
     Dosage: 4224 MG (2400 MG/M2), D1-2
     Route: 041
     Dates: start: 20110105, end: 20110119
  5. ERBITUX [Concomitant]
     Indication: COLORECTAL CANCER
     Dosage: 440 MG (250 MG/M2), UNK
     Route: 041
     Dates: start: 20110105, end: 20110119

REACTIONS (2)
  - PNEUMONIA [None]
  - RENAL IMPAIRMENT [None]
